FAERS Safety Report 8988206 (Version 3)
Quarter: 2013Q1

REPORT INFORMATION
  Report Type: Report from Study
  Country: JP (occurrence: JP)
  Receive Date: 20121227
  Receipt Date: 20130124
  Transmission Date: 20140127
  Serious: Yes (Hospitalization)
  Sender: FDA-Public Use
  Company Number: JP-ASTELLAS-2012US012683

PATIENT
  Age: 65 None
  Sex: Male
  Weight: 68 kg

DRUGS (13)
  1. ERLOTINIB TABLET [Suspect]
     Indication: NON-SMALL CELL LUNG CANCER
     Dosage: 150 MG, UID/QD
     Route: 048
     Dates: start: 20110418, end: 20121218
  2. BEVACIZUMAB [Suspect]
     Indication: NON-SMALL CELL LUNG CANCER
     Dosage: 1026 MG, Q3W
     Route: 042
     Dates: start: 20110418, end: 20120904
  3. ALLELOCK [Concomitant]
     Indication: SEASONAL ALLERGY
     Dosage: 10 MG, UID/QD
     Route: 048
     Dates: start: 20120323
  4. DERMOVATE [Concomitant]
     Indication: RASH
     Dosage: UNK
     Route: 061
     Dates: start: 20110912
  5. BIOFERMIN R [Concomitant]
     Indication: PROPHYLAXIS AGAINST DIARRHOEA
     Dosage: 18 MG, UID/QD
     Route: 048
     Dates: start: 20110502
  6. MOMETASONE FUROATE [Concomitant]
     Indication: RASH
     Dosage: UNK
     Route: 061
     Dates: start: 20110530
  7. MINOMYCIN [Concomitant]
     Indication: RASH
     Dosage: 200 MG, UID/QD
     Route: 048
     Dates: start: 20111003
  8. SEPAMIT [Concomitant]
     Indication: HYPERTENSION
     Dosage: 40 MG, UID/QD
     Route: 048
     Dates: start: 20111101
  9. POLYCARBOPHIL                      /00567702/ [Concomitant]
     Indication: DIARRHOEA
     Dosage: 3.6 G, UID/QD
     Route: 048
     Dates: start: 20111206
  10. HIRUDOID                           /00723701/ [Concomitant]
     Indication: RASH
     Dosage: UNK
     Route: 061
     Dates: start: 20120604
  11. LOXONIN [Concomitant]
     Indication: BACK PAIN
     Dosage: UNK
     Route: 061
     Dates: start: 20120710
  12. OPSO [Concomitant]
     Indication: PAIN
     Dosage: 5 MG, UNKNOWN/D
     Route: 048
     Dates: start: 20121127
  13. OPSO [Concomitant]
     Indication: COUGH

REACTIONS (2)
  - Pulmonary embolism [Not Recovered/Not Resolved]
  - Oedema peripheral [Recovering/Resolving]
